FAERS Safety Report 9870976 (Version 3)
Quarter: 2014Q1

REPORT INFORMATION
  Report Type: Spontaneous
  Country: MX (occurrence: MX)
  Receive Date: 20140205
  Receipt Date: 20140317
  Transmission Date: 20141002
  Serious: Yes (Death)
  Sender: FDA-Public Use
  Company Number: MX-BRACCO-000029

PATIENT
  Age: 62 Year
  Sex: Female
  Weight: 72 kg

DRUGS (3)
  1. IOPAMIRO [Suspect]
     Indication: SPINAL MYELOGRAM
     Route: 037
     Dates: start: 20140106, end: 20140106
  2. GLIBENCLAMIDE [Concomitant]
     Dates: start: 2003
  3. METFORMIN [Concomitant]
     Dates: start: 2003

REACTIONS (11)
  - Idiosyncratic drug reaction [Fatal]
  - Tonic clonic movements [Fatal]
  - Kidney infection [Fatal]
  - Ketoacidosis [Fatal]
  - Meningitis [Unknown]
  - Electrolyte imbalance [Unknown]
  - Hypertension [Unknown]
  - Tachycardia [Unknown]
  - Hyperglycaemia [Unknown]
  - Anxiety [Unknown]
  - Injection site pain [Unknown]
